FAERS Safety Report 10670615 (Version 1)
Quarter: 2014Q4

REPORT INFORMATION
  Report Type: Spontaneous
  Country: MX (occurrence: None)
  Receive Date: 20141219
  Receipt Date: 20141219
  Transmission Date: 20150529
  Serious: No
  Sender: FDA-Public Use
  Company Number: A1054558A

PATIENT
  Age: 32 Year
  Sex: Female

DRUGS (4)
  1. PAROXETINE HYDROCHLORIDE TABLETS [Suspect]
     Active Substance: PAROXETINE HYDROCHLORIDE
     Indication: ANXIETY
     Route: 048
     Dates: start: 201302
  2. LEVETIRACETAM. [Concomitant]
     Active Substance: LEVETIRACETAM
  3. TRILEPTAL [Concomitant]
     Active Substance: OXCARBAZEPINE
  4. CLONAZEPAM. [Concomitant]
     Active Substance: CLONAZEPAM

REACTIONS (10)
  - Weight increased [None]
  - Drug hypersensitivity [None]
  - Nervous system disorder [None]
  - Drug administration error [None]
  - Therapeutic response unexpected [None]
  - Increased appetite [None]
  - Erythema [None]
  - Hunger [None]
  - Anxiety [None]
  - Urticaria [None]
